FAERS Safety Report 18001093 (Version 2)
Quarter: 2020Q3

REPORT INFORMATION
  Report Type: Report from Study
  Country: US (occurrence: US)
  Receive Date: 20200709
  Receipt Date: 20200723
  Transmission Date: 20201103
  Serious: Yes (Hospitalization)
  Sender: FDA-Public Use
  Company Number: US-ELI_LILLY_AND_COMPANY-US201909014405

PATIENT
  Age: 54 Year
  Sex: Male

DRUGS (3)
  1. HUMULIN NOS [Suspect]
     Active Substance: INSULIN HUMAN
     Indication: PRODUCT USED FOR UNKNOWN INDICATION
     Dosage: 40 U, DAILY
     Route: 065
  2. HUMULIN NOS [Suspect]
     Active Substance: INSULIN HUMAN
     Dosage: 60 U, UNKNOWN
     Route: 065
  3. HUMULIN NOS [Suspect]
     Active Substance: INSULIN HUMAN
     Dosage: 30 U, BID
     Route: 065

REACTIONS (5)
  - Diabetic coma [Unknown]
  - Blood glucose increased [Unknown]
  - Diabetic foot [Not Recovered/Not Resolved]
  - Diabetic ketoacidosis [Unknown]
  - Injury [Unknown]

NARRATIVE: CASE EVENT DATE: 20181226
